FAERS Safety Report 4600054-3 (Version None)
Quarter: 2005Q1

REPORT INFORMATION
  Report Type: 
  Country: None (occurrence: None)
  Receive Date: 20050303
  Receipt Date: 20050217
  Transmission Date: 20050727
  Serious: Yes (Other)
  Sender: FDA-Public Use
  Company Number: EWC050242709

PATIENT
  Age: 46 Year
  Sex: Female
  Weight: 56 kg

DRUGS (3)
  1. HUMATROPE [Suspect]
     Indication: HYPOPHYSECTOMY
     Dosage: 0.6 MG/1 DAY
     Dates: start: 20030917, end: 20050208
  2. DOSTINEX [Concomitant]
  3. EUTIROX (LEVOTHYROXINE) [Concomitant]

REACTIONS (3)
  - CRANIOPHARYNGIOMA [None]
  - INSULIN-LIKE GROWTH FACTOR DECREASED [None]
  - NEOPLASM RECURRENCE [None]
